FAERS Safety Report 5860740-4 (Version None)
Quarter: 2008Q3

REPORT INFORMATION
  Report Type: 
  Country: None (occurrence: None)
  Receive Date: 20080827
  Receipt Date: 20071107
  Transmission Date: 20090109
  Serious: Yes (Hospitalization)
  Sender: FDA-Public Use
  Company Number: US-ABBOTT-07P-163-0423671-00

PATIENT
  Age: 50 Year

DRUGS (2)
  1. NIASPAN [Suspect]
     Indication: HIGH DENSITY LIPOPROTEIN DECREASED
     Dates: start: 20071024
  2. NIASPAN [Suspect]
     Indication: BLOOD TRIGLYCERIDES INCREASED

REACTIONS (2)
  - BLOOD URIC ACID INCREASED [None]
  - OEDEMA PERIPHERAL [None]
